FAERS Safety Report 20346806 (Version 1)
Quarter: 2022Q1

REPORT INFORMATION
  Report Type: Spontaneous
  Country: US (occurrence: None)
  Receive Date: 20220116
  Receipt Date: 20220116
  Transmission Date: 20220423
  Serious: Yes (Other)
  Sender: FDA-Public Use
  Company Number: None

PATIENT
  Age: 38 Year
  Sex: Female
  Weight: 54.43 kg

DRUGS (1)
  1. PARAGARD T 380A [Suspect]
     Active Substance: COPPER

REACTIONS (5)
  - Complication associated with device [None]
  - Hypersomnia [None]
  - Arthralgia [None]
  - Device expulsion [None]
  - Gait disturbance [None]

NARRATIVE: CASE EVENT DATE: 20211221
